FAERS Safety Report 6538936-8 (Version None)
Quarter: 2010Q1

REPORT INFORMATION
  Report Type: 
  Country: None (occurrence: None)
  Receive Date: 20100115
  Receipt Date: 20100107
  Transmission Date: 20100710
  Serious: Yes (Hospitalization)
  Sender: FDA-Public Use
  Company Number: CA-ROCHE-677966

PATIENT
  Age: 8 Month
  Sex: Male

DRUGS (15)
  1. CELLCEPT [Suspect]
     Indication: PROPHYLAXIS AGAINST TRANSPLANT REJECTION
     Route: 048
     Dates: end: 20090612
  2. ARANESP [Suspect]
     Indication: RENAL FAILURE CHRONIC
     Route: 058
     Dates: start: 20090301
  3. ARANESP [Suspect]
     Dosage: 10 UG, 1 PER 5 DAYS, DOSE TITRATED TO A MAXIMUM OF 50 UG
     Route: 058
     Dates: start: 20090406, end: 20090504
  4. TACROLIMUS [Concomitant]
     Route: 048
  5. ETACRYNIC ACID [Concomitant]
     Route: 042
  6. METOLAZONE [Concomitant]
     Route: 048
  7. SODIUM CHLORIDE [Concomitant]
  8. CLOBAZAM [Concomitant]
  9. LEVETIRACETAM [Concomitant]
  10. DOMPERIDONE [Concomitant]
     Route: 048
  11. OMEPRAZOLE [Concomitant]
  12. ENALAPRIL [Concomitant]
     Route: 048
  13. CALCITRIOL [Concomitant]
  14. FUROSEMIDE [Concomitant]
  15. TOPIRAMATE [Concomitant]

REACTIONS (8)
  - APLASIA PURE RED CELL [None]
  - DEVICE RELATED INFECTION [None]
  - ENTEROCOCCAL INFECTION [None]
  - PYREXIA [None]
  - RESPIRATORY DISTRESS [None]
  - STAPHYLOCOCCAL INFECTION [None]
  - THROMBOSIS [None]
  - WHEEZING [None]
